FAERS Safety Report 9536917 (Version 1)
Quarter: 2013Q3

REPORT INFORMATION
  Report Type: Spontaneous
  Country: US (occurrence: US)
  Receive Date: 20130919
  Receipt Date: 20130919
  Transmission Date: 20140515
  Serious: Yes (Hospitalization)
  Sender: FDA-Public Use
  Company Number: US-BAYER-2013-113268

PATIENT
  Age: 17 Year
  Sex: Female

DRUGS (5)
  1. YASMIN [Suspect]
     Indication: DYSFUNCTIONAL UTERINE BLEEDING
  2. LUNESTA [Concomitant]
     Indication: SLEEP DISORDER THERAPY
  3. LEVOXYL [Concomitant]
  4. SINGULAIR [Concomitant]
     Indication: BRONCHIAL HYPERREACTIVITY
  5. HUMALOG [Concomitant]

REACTIONS (2)
  - Thrombophlebitis superficial [Recovered/Resolved]
  - Deep vein thrombosis [Recovered/Resolved]
